FAERS Safety Report 4867787-5 (Version None)
Quarter: 2005Q4

REPORT INFORMATION
  Report Type: 
  Country: None (occurrence: None)
  Receive Date: 20051223
  Receipt Date: 20051223
  Transmission Date: 20060501
  Serious: Yes (Other)
  Sender: FDA-Public Use
  Company Number: None

PATIENT
  Sex: Female
  Weight: 138 kg

DRUGS (4)
  1. RITUXIMAB [Suspect]
     Indication: CHRONIC LYMPHOCYTIC LEUKAEMIA
     Dosage: SEE IMAGE
     Route: 042
     Dates: start: 20051010
  2. RITUXIMAB [Suspect]
     Dosage: SEE IMAGE
     Route: 042
  3. RITUXIMAB [Suspect]
     Dosage: SEE IMAGE
     Route: 042
  4. FLUDARABINE [Suspect]
     Dosage: SEE IMAGE
     Route: 042
     Dates: start: 20051014

REACTIONS (2)
  - DEPRESSION [None]
  - SUICIDAL IDEATION [None]
